FAERS Safety Report 7909455-9 (Version None)
Quarter: 2011Q4

REPORT INFORMATION
  Report Type: 
  Country: None (occurrence: None)
  Receive Date: 20111111
  Receipt Date: 20111101
  Transmission Date: 20120403
  Serious: No
  Sender: FDA-Public Use
  Company Number: JP-AMGEN-JPNCT2011051842

PATIENT
  Age: 50 Year
  Sex: Male
  Weight: 70 kg

DRUGS (38)
  1. MECOBALAMIN [Concomitant]
     Dosage: UNK
     Route: 048
  2. DEXAMETHASONE SODIUM PHOSPHATE [Concomitant]
     Indication: VOMITING
     Dosage: UNK
     Route: 042
  3. MOTILIUM [Concomitant]
     Indication: VOMITING
     Dosage: UNK
     Route: 054
  4. PANITUMUMAB [Suspect]
     Indication: COLORECTAL CANCER
     Dosage: 6 MG/KG, Q2WK
     Route: 041
     Dates: start: 20100917, end: 20101126
  5. PANITUMUMAB [Suspect]
     Dosage: 6 MG/KG, Q2WK
     Route: 041
     Dates: start: 20110128
  6. TOPOTECAN [Suspect]
     Indication: COLORECTAL CANCER
     Dosage: 150 MG/M2, Q2WK
     Route: 041
     Dates: start: 20100917
  7. ANTEBATE [Concomitant]
     Dosage: UNK
     Route: 062
  8. EMEND [Concomitant]
     Indication: VOMITING
     Dosage: UNK
     Route: 048
  9. POSTERISAN [Concomitant]
     Dosage: UNK
     Route: 062
  10. PANITUMUMAB [Suspect]
     Dosage: 5 MG/KG, Q2WK
     Route: 041
     Dates: start: 20101210, end: 20110114
  11. PROTECADIN [Concomitant]
     Indication: GASTRIC ULCER
     Dosage: UNK
     Route: 048
  12. ALOXI [Concomitant]
     Indication: VOMITING
     Dosage: UNK
     Route: 042
  13. LOCOID [Concomitant]
     Dosage: UNK
     Route: 062
  14. KETOPROFEN [Concomitant]
     Dosage: UNK
     Route: 062
  15. MOBIC [Concomitant]
     Dosage: UNK
     Route: 048
  16. DECADRON [Concomitant]
     Indication: VOMITING
     Dosage: UNK
     Route: 048
  17. GENTAMICIN SULFATE [Concomitant]
     Dosage: UNK
     Route: 062
  18. LEVOFLOXACIN [Concomitant]
     Dosage: UNK
     Route: 047
  19. PRIMPERAN TAB [Concomitant]
     Indication: VOMITING
     Dosage: UNK
     Route: 042
  20. PROMAC [Concomitant]
     Indication: GASTRIC ULCER
     Dosage: UNK
     Route: 048
  21. FAMOTIDINE [Concomitant]
     Dosage: UNK
     Route: 042
  22. DASEN [Concomitant]
     Dosage: UNK
     Route: 048
  23. CORTICOSTEROIDS [Concomitant]
     Indication: PROPHYLAXIS
     Dosage: UNK
     Route: 065
  24. NEUROTROPIN [Concomitant]
     Dosage: UNK
     Route: 048
  25. HIRUDOID [Concomitant]
     Dosage: UNK
     Route: 065
  26. POTASSIUM CHLORIDE [Concomitant]
     Indication: VOMITING
     Dosage: UNK
     Route: 042
  27. FLUOROURACIL [Suspect]
     Indication: COLORECTAL CANCER
     Dosage: 400 MG/M2, Q2WK
     Route: 040
     Dates: start: 20100917
  28. FLUOROURACIL [Suspect]
     Dosage: 2400 MG/M2, Q2WK
     Route: 041
     Dates: start: 20100917
  29. TRANEXAMIC ACID [Concomitant]
     Dosage: UNK
     Route: 048
  30. LIDOMEX [Concomitant]
     Dosage: UNK
     Route: 062
  31. NIFLAN [Concomitant]
     Dosage: UNK
     Route: 047
  32. FLUMETHOLON [Concomitant]
     Dosage: UNK
     Route: 047
  33. LEVOLEUCOVORIN CALCIUM [Concomitant]
     Indication: COLORECTAL CANCER
     Route: 041
     Dates: start: 20100917, end: 20110128
  34. PYDOXAL [Concomitant]
     Dosage: UNK
     Route: 048
  35. LEUCON [Concomitant]
     Dosage: UNK
     Route: 048
  36. SOLACET D [Concomitant]
     Indication: VOMITING
     Dosage: UNK
     Route: 042
  37. KERATINAMIN [Concomitant]
     Dosage: UNK
     Route: 062
  38. RIBOFLAVIN TAB [Concomitant]
     Route: 048

REACTIONS (5)
  - VOMITING [None]
  - HAEMORRHOIDS [None]
  - INGROWING NAIL [None]
  - HYPERKERATOSIS [None]
  - CONJUNCTIVITIS [None]
